FAERS Safety Report 7464193-4 (Version None)
Quarter: 2011Q2

REPORT INFORMATION
  Report Type: 
  Country: None (occurrence: None)
  Receive Date: 20110506
  Receipt Date: 20110427
  Transmission Date: 20111010
  Serious: Yes (Other)
  Sender: FDA-Public Use
  Company Number: GB-ASTRAZENECA-2011SE24107

PATIENT
  Age: 35 Year
  Sex: Female

DRUGS (6)
  1. OMEPRAZOLE [Concomitant]
     Indication: HYPERLIPIDAEMIA
     Route: 048
     Dates: start: 20110302, end: 20110324
  2. QUETIAPINE [Suspect]
     Indication: BIPOLAR DISORDER
     Route: 048
     Dates: start: 20110120, end: 20110325
  3. CITALOPRAM [Concomitant]
     Indication: DEPRESSION
     Route: 048
     Dates: start: 20080219, end: 20110324
  4. ERYTHROMYCIN [Concomitant]
     Indication: OROPHARYNGEAL PAIN
     Route: 048
     Dates: start: 20110302, end: 20110309
  5. NYSTATIN [Concomitant]
     Indication: CANDIDIASIS
     Route: 048
     Dates: start: 20110302, end: 20110309
  6. SIMVASTATIN [Concomitant]
     Indication: HYPERLIPIDAEMIA
     Route: 048
     Dates: end: 20110324

REACTIONS (3)
  - GAMMA-GLUTAMYLTRANSFERASE INCREASED [None]
  - HYPERLIPIDAEMIA [None]
  - CONDITION AGGRAVATED [None]
